FAERS Safety Report 7635636-8 (Version None)
Quarter: 2011Q3

REPORT INFORMATION
  Report Type: 
  Country: None (occurrence: None)
  Receive Date: 20110726
  Receipt Date: 20110715
  Transmission Date: 20111222
  Serious: Yes (Other)
  Sender: FDA-Public Use
  Company Number: PHFR2010GB04414

PATIENT
  Age: 48 Year
  Sex: Male

DRUGS (3)
  1. DICLOFENAC SODIUM [Suspect]
     Indication: ARTHRALGIA
     Dosage: 100 MG, QD
     Route: 048
     Dates: end: 20100701
  2. ADENURIC [Suspect]
     Indication: GOUT
     Dosage: 80 MG, QD
     Dates: start: 20100501, end: 20100701
  3. COLCHICINE [Suspect]
     Dosage: 500 UG, QD

REACTIONS (5)
  - GAMMA-GLUTAMYLTRANSFERASE INCREASED [None]
  - PLATELET COUNT DECREASED [None]
  - LIVER FUNCTION TEST ABNORMAL [None]
  - BLOOD URIC ACID INCREASED [None]
  - ALANINE AMINOTRANSFERASE INCREASED [None]
